FAERS Safety Report 25407668 (Version 2)
Quarter: 2025Q3

REPORT INFORMATION
  Report Type: Report from Study
  Country: US (occurrence: US)
  Receive Date: 20250606
  Receipt Date: 20250803
  Transmission Date: 20251021
  Serious: Yes (Other)
  Sender: ALEXION PHARMACEUTICALS
  Company Number: US-AstraZeneca-CH-00884714A

PATIENT
  Age: 61 Year
  Sex: Female

DRUGS (1)
  1. CALQUENCE [Suspect]
     Active Substance: ACALABRUTINIB
     Indication: Mantle cell lymphoma
     Dosage: 100 MILLIGRAM, Q12H
     Dates: start: 20250423

REACTIONS (3)
  - Pain [Unknown]
  - Blood urine present [Unknown]
  - Nephrolithiasis [Unknown]
